FAERS Safety Report 10254234 (Version 1)
Quarter: 2014Q2

REPORT INFORMATION
  Report Type: Other
  Country: US (occurrence: US)
  Receive Date: 20140624
  Receipt Date: 20140624
  Transmission Date: 20141212
  Serious: Yes (Hospitalization, Other)
  Sender: FDA-Public Use
  Company Number: US-GLENMARK GENERICS (EUROPE) LTD-2014GMK009904

PATIENT
  Age: 13 Year
  Sex: Male

DRUGS (2)
  1. TOPIRAMATE [Suspect]
     Indication: AGGRESSION
     Dosage: UNK
     Dates: start: 20140421
  2. TOPIRAMATE [Suspect]
     Indication: ANTISOCIAL BEHAVIOUR

REACTIONS (9)
  - Condition aggravated [Unknown]
  - Aggression [Unknown]
  - Antisocial behaviour [Unknown]
  - Enuresis [Unknown]
  - Insomnia [Unknown]
  - Headache [Unknown]
  - Drug ineffective [Unknown]
  - Off label use [None]
  - Product substitution issue [None]
